FAERS Safety Report 9543719 (Version 3)
Quarter: 2014Q1

REPORT INFORMATION
  Report Type: Not Available
  Country: GB (occurrence: GB)
  Receive Date: 20130923
  Receipt Date: 20140116
  Transmission Date: 20141002
  Serious: Yes (Disabling, Other)
  Sender: FDA-Public Use
  Company Number: GB-PURDUE-GBR-2013-0015769

PATIENT
  Age: 70 Year
  Sex: Male

DRUGS (3)
  1. MORPHINE SULFATE [Suspect]
     Indication: BACK PAIN
     Dosage: UNK
     Route: 065
  2. DIHYDROCODEINE BITARTRATE [Suspect]
     Indication: BACK PAIN
     Dosage: 240 MG, DAILY
     Route: 048
  3. NEURONTIN [Suspect]
     Indication: BACK PAIN
     Dosage: 2700 MG, DAILY
     Route: 065

REACTIONS (6)
  - Prescribed overdose [Unknown]
  - Cough [Unknown]
  - Throat irritation [Unknown]
  - Pharyngeal disorder [Unknown]
  - Oropharyngeal pain [Unknown]
  - Negative thoughts [Unknown]
